FAERS Safety Report 11163276 (Version 1)
Quarter: 2015Q2

REPORT INFORMATION
  Report Type: Report from Study
  Country: DE (occurrence: DE)
  Receive Date: 20150604
  Receipt Date: 20150604
  Transmission Date: 20150821
  Serious: Yes (Death, Hospitalization)
  Sender: FDA-Public Use
  Company Number: DE-ROCHE-1573759

PATIENT
  Age: 71 Year
  Sex: Male

DRUGS (2)
  1. RITUXIMAB [Suspect]
     Active Substance: RITUXIMAB
     Dosage: DAY 1 OF CYCLE 6
     Route: 042
     Dates: start: 20110228
  2. RITUXIMAB [Suspect]
     Active Substance: RITUXIMAB
     Indication: MANTLE CELL LYMPHOMA
     Dosage: DAY 1 OF CYCLE 1
     Route: 042
     Dates: start: 20100719

REACTIONS (4)
  - Visual impairment [Unknown]
  - Headache [Unknown]
  - Disease progression [Fatal]
  - Pancreatitis [Unknown]

NARRATIVE: CASE EVENT DATE: 20100813
